FAERS Safety Report 4515368-5 (Version None)
Quarter: 2004Q4

REPORT INFORMATION
  Report Type: 
  Country: None (occurrence: None)
  Receive Date: 20041201
  Receipt Date: 20041116
  Transmission Date: 20050328
  Serious: Yes (Hospitalization)
  Sender: FDA-Public Use
  Company Number: NL-ROCHE-386289

PATIENT
  Age: 72 Year
  Sex: Male
  Weight: 86.5 kg

DRUGS (5)
  1. INTERFERON ALFA-2A [Suspect]
     Dosage: 6 MILLIONU/M2 ONCE A WEEK ON WEEK ONE+ FOUR AND THRICE WEEKLY ON WEEK 2 + 3.  CUMULATIVE DO+
     Route: 058
     Dates: start: 20041018, end: 20041115
  2. INTERFERON ALFA-2A [Suspect]
     Dosage: 6 MILLIONU/M2 ONCE A WEEK ON WEEK ONE+ FOUR AND THRICE WEEKLY ON WEEK 2 + 3.  CUMULATIVE DO+
     Route: 058
     Dates: start: 20041117
  3. INTERLEUKIN-2 [Suspect]
     Dosage: 10 MILLIONU/M2 ON DAY THREE FOR THREE DAYS ON WEEK 1 + 4 AND 5MILLIONU/M2 THRICE WEEKLY ON WEEK+
     Route: 058
     Dates: start: 20041020, end: 20041112
  4. INTERLEUKIN-2 [Suspect]
     Dosage: 10 MILLIONU/M2 ON DAY THREE FOR THREE DAYS ON WEEK 1 + 4 AND 5MILLIONU/M2 THRICE WEEKLY ON WEEK+
     Route: 058
     Dates: start: 20041117
  5. 5-FU [Suspect]
     Route: 065
     Dates: start: 20041117

REACTIONS (4)
  - DEHYDRATION [None]
  - DIARRHOEA [None]
  - HAEMATEMESIS [None]
  - NAUSEA [None]
